FAERS Safety Report 4299405-1 (Version None)
Quarter: 2004Q1

REPORT INFORMATION
  Report Type: 
  Country: None (occurrence: None)
  Receive Date: 20040217
  Receipt Date: 20040209
  Transmission Date: 20041129
  Serious: Yes (Hospitalization)
  Sender: FDA-Public Use
  Company Number: 2004006647

PATIENT
  Age: 22 Year
  Sex: Female

DRUGS (1)
  1. ZITHROMAX [Suspect]
     Indication: PERIODONTITIS
     Dosage: 500 MG, ORAL
     Route: 048
     Dates: start: 20040106

REACTIONS (1)
  - MYOCARDITIS [None]
